FAERS Safety Report 8083032-4 (Version None)
Quarter: 2012Q1

REPORT INFORMATION
  Report Type: 
  Country: None (occurrence: None)
  Receive Date: 20120127
  Receipt Date: 20110301
  Transmission Date: 20120608
  Serious: Yes (Other)
  Sender: FDA-Public Use
  Company Number: US-ABBOTT-11P-163-0708550-00

PATIENT
  Sex: Male
  Weight: 81.72 kg

DRUGS (12)
  1. AVAPRO [Concomitant]
     Indication: HYPERTENSION
  2. HUMIRA [Suspect]
     Indication: PSORIATIC ARTHROPATHY
  3. INSULIN [Concomitant]
     Indication: DIABETES MELLITUS
  4. LOSARTAN POTASSIUM [Concomitant]
     Indication: HYPERTENSION
  5. OMEPRAZOLE [Concomitant]
     Indication: GASTROOESOPHAGEAL REFLUX DISEASE
  6. TRIANCINOLONE [Concomitant]
     Indication: PSORIASIS
  7. HUMIRA [Suspect]
     Indication: PSORIASIS
     Dates: start: 20101116, end: 20110217
  8. NORVASC [Concomitant]
     Indication: HYPERTENSION
  9. GLIPIZIDE [Concomitant]
     Indication: DIABETES MELLITUS
  10. VITAMIN D [Concomitant]
     Indication: VITAMIN SUPPLEMENTATION
  11. METOPROLOL TARTRATE [Concomitant]
     Indication: HYPERTENSION
  12. SERTRALINE HYDROCHLORIDE [Concomitant]
     Indication: DEPRESSION

REACTIONS (1)
  - RENAL CELL CARCINOMA [None]
